FAERS Safety Report 15472225 (Version 3)
Quarter: 2018Q4

REPORT INFORMATION
  Report Type: Spontaneous
  Country: CA (occurrence: CA)
  Receive Date: 20181008
  Receipt Date: 20181129
  Transmission Date: 20190205
  Serious: Yes (Other)
  Sender: FDA-Public Use
  Company Number: CA-ROCHE-2194802

PATIENT
  Age: 27 Year
  Sex: Female

DRUGS (2)
  1. XOLAIR [Suspect]
     Active Substance: OMALIZUMAB
     Route: 058
     Dates: start: 20180906
  2. XOLAIR [Suspect]
     Active Substance: OMALIZUMAB
     Indication: ASTHMA
     Route: 058
     Dates: start: 20130621

REACTIONS (8)
  - Dizziness [Unknown]
  - Headache [Unknown]
  - Nausea [Unknown]
  - Loss of consciousness [Unknown]
  - Vertigo positional [Unknown]
  - Photosensitivity reaction [Unknown]
  - Vestibular migraine [Unknown]
  - Confusional state [Unknown]

NARRATIVE: CASE EVENT DATE: 20180923
